FAERS Safety Report 4457687-7 (Version None)
Quarter: 2004Q3

REPORT INFORMATION
  Report Type: 
  Country: None (occurrence: None)
  Receive Date: 20040831
  Receipt Date: 20040616
  Transmission Date: 20050211
  Serious: No
  Sender: FDA-Public Use
  Company Number: MPS1-10243

PATIENT
  Age: 9 Year
  Sex: Female
  Weight: 16 kg

DRUGS (7)
  1. ALDURAZYME [Suspect]
     Indication: MUCOPOLYSACCHARIDOSIS IH
     Dosage: 8.7 MG QWK IV
     Route: 042
  2. PROPRANOLOL [Concomitant]
  3. TRIAMTERENE AND HYDROCHLOROTHIAZID [Concomitant]
  4. TRUSOPT [Concomitant]
  5. XALATAN [Concomitant]
  6. ACETAMINOPHEN [Concomitant]
  7. DIPHENHYDRAMINE HCL [Concomitant]

REACTIONS (1)
  - BLOOD PRESSURE FLUCTUATION [None]
